FAERS Safety Report 10997770 (Version 2)
Quarter: 2015Q2

REPORT INFORMATION
  Report Type: Spontaneous
  Country: US (occurrence: US)
  Receive Date: 20150408
  Receipt Date: 20150505
  Transmission Date: 20150821
  Serious: Yes (Congenital Anomaly, Other)
  Sender: FDA-Public Use
  Company Number: US-ELI_LILLY_AND_COMPANY-US201503010398

PATIENT

DRUGS (3)
  1. PROZAC [Suspect]
     Active Substance: FLUOXETINE HYDROCHLORIDE
     Dosage: 40 MG, QD
     Route: 063
     Dates: start: 200005
  2. TYLENOL [Concomitant]
     Active Substance: ACETAMINOPHEN
     Dosage: UNK, UNKNOWN
     Route: 064
  3. PROZAC [Suspect]
     Active Substance: FLUOXETINE HYDROCHLORIDE
     Indication: DEPRESSION
     Dosage: 40 MG, QD
     Route: 064
     Dates: start: 199908

REACTIONS (23)
  - Premature baby [Unknown]
  - Exposure during breast feeding [Unknown]
  - Developmental hip dysplasia [Unknown]
  - Inappropriate antidiuretic hormone secretion [Recovered/Resolved]
  - Neurogenic bladder [Recovered/Resolved]
  - Foetal exposure during pregnancy [Recovered/Resolved]
  - Joint range of motion decreased [Unknown]
  - Talipes [Unknown]
  - Cerebrospinal fluid leakage [Unknown]
  - Asthenia [Unknown]
  - Sensory loss [Unknown]
  - Spina bifida [Unknown]
  - CSF culture positive [Recovered/Resolved]
  - Pyrexia [Recovered/Resolved]
  - Kyphosis [Unknown]
  - Mobility decreased [Unknown]
  - Hypothalamo-pituitary disorder [Unknown]
  - Skin necrosis [Recovered/Resolved]
  - Developmental delay [Unknown]
  - Posture abnormal [Unknown]
  - Congenital hydrocephalus [Unknown]
  - Strabismus [Unknown]
  - Muscle spasticity [Unknown]
